FAERS Safety Report 6414494-3 (Version None)
Quarter: 2009Q4

REPORT INFORMATION
  Report Type: 
  Country: None (occurrence: None)
  Receive Date: 20091026
  Receipt Date: 20091013
  Transmission Date: 20100525
  Serious: Yes (Other)
  Sender: FDA-Public Use
  Company Number: US-ELI_LILLY_AND_COMPANY-US200910003193

PATIENT
  Sex: Female

DRUGS (7)
  1. CYMBALTA [Suspect]
     Indication: DIABETIC NEUROPATHY
     Dosage: 90 MG, DAILY (1/D)
  2. METOPROLOL [Concomitant]
     Dosage: 100 MG, 2/D
  3. METFORMIN HCL [Concomitant]
     Dosage: 1000 MG, 2/D
  4. NOVOLOG [Concomitant]
     Dosage: 15 U, 2/D
  5. NOVOLOG [Concomitant]
     Dosage: 12 U, DAILY (1/D)
  6. PLAVIX [Concomitant]
     Dosage: 75 MG, DAILY (1/D)
  7. ASPIRIN [Concomitant]
     Dosage: 81 MG, DAILY (1/D)

REACTIONS (6)
  - ABNORMAL BEHAVIOUR [None]
  - CORONARY ARTERY BYPASS [None]
  - DRUG WITHDRAWAL SYNDROME [None]
  - MEMORY IMPAIRMENT [None]
  - RETINAL VASCULAR OCCLUSION [None]
  - VISUAL ACUITY REDUCED [None]
